FAERS Safety Report 19318623 (Version 1)
Quarter: 2021Q2

REPORT INFORMATION
  Report Type: Spontaneous
  Country: FR (occurrence: FR)
  Receive Date: 20210528
  Receipt Date: 20210528
  Transmission Date: 20210717
  Serious: Yes (Other)
  Sender: FDA-Public Use
  Company Number: FR-CELLTRION INC.-2021FR006873

PATIENT

DRUGS (3)
  1. RITUXIMAB (UNKNOWN) [Suspect]
     Active Substance: RITUXIMAB
     Dosage: 5 CYCLES
     Route: 065
  2. BENDAMUSTINE HYDROCHLORIDE. [Suspect]
     Active Substance: BENDAMUSTINE HYDROCHLORIDE
     Indication: LYMPHOCYTIC LYMPHOMA
     Dosage: 5 CYCLES (MANUFACTURER UNKNOWN)
     Route: 065
  3. RITUXIMAB (UNKNOWN) [Suspect]
     Active Substance: RITUXIMAB
     Indication: LYMPHOCYTIC LYMPHOMA
     Dosage: 5 CYCLES
     Route: 065

REACTIONS (3)
  - Off label use [Unknown]
  - Hypogammaglobulinaemia [Unknown]
  - Infection [Unknown]
